FAERS Safety Report 10757693 (Version 1)
Quarter: 2015Q1

REPORT INFORMATION
  Report Type: Spontaneous
  Country: US (occurrence: None)
  Receive Date: 20150202
  Receipt Date: 20150202
  Transmission Date: 20150721
  Serious: Yes (Other)
  Sender: FDA-Public Use
  Company Number: None

PATIENT
  Age: 65 Year
  Sex: Male

DRUGS (5)
  1. MELOXICAM. [Concomitant]
     Active Substance: MELOXICAM
  2. CITALOPRAM [Suspect]
     Active Substance: CITALOPRAM HYDROBROMIDE
     Dosage: 1 TABLET QD ORAL
     Route: 048
     Dates: start: 20141126, end: 20150130
  3. LISINOPRIL. [Concomitant]
     Active Substance: LISINOPRIL
  4. TIMOLOL [Concomitant]
     Active Substance: TIMOLOL
  5. LATANOPROST. [Concomitant]
     Active Substance: LATANOPROST

REACTIONS (2)
  - Disease recurrence [None]
  - Product quality issue [None]

NARRATIVE: CASE EVENT DATE: 20150130
